FAERS Safety Report 25512942 (Version 1)
Quarter: 2025Q3

REPORT INFORMATION
  Report Type: Other
  Country: US (occurrence: US)
  Receive Date: 20250703
  Receipt Date: 20250703
  Transmission Date: 20251021
  Serious: Yes (Other)
  Sender: TRAVERE THERAPEUTICS
  Company Number: US-TRAVERE-2025TVT01070

PATIENT
  Sex: Male

DRUGS (1)
  1. FILSPARI [Suspect]
     Active Substance: SPARSENTAN
     Indication: IgA nephropathy
     Route: 048
     Dates: start: 202503

REACTIONS (1)
  - Transplant failure [Unknown]
